FAERS Safety Report 20422254 (Version 1)
Quarter: 2022Q1

REPORT INFORMATION
  Report Type: Spontaneous
  Country: US (occurrence: US)
  Receive Date: 20220203
  Receipt Date: 20220203
  Transmission Date: 20220424
  Serious: Yes (Other)
  Sender: FDA-Public Use
  Company Number: US-LUPIN PHARMACEUTICALS INC.-2022-01236

PATIENT
  Age: 66 Year
  Sex: Male

DRUGS (16)
  1. CLONIDINE [Suspect]
     Active Substance: CLONIDINE
     Indication: Product used for unknown indication
     Dosage: 0.2 MILLIGRAM (19 TABLETS, AT BEDTIME (ONGOING TAPER))
     Route: 048
  2. CLONIDINE [Suspect]
     Active Substance: CLONIDINE
     Dosage: 0.2 MILLIGRAM (19 TABLETS, AT BEDTIME - AFTER WITHDRAWAL GIVEN AGAIN)
     Route: 048
  3. CLONIDINE [Suspect]
     Active Substance: CLONIDINE
     Dosage: 0.3 MILLIGRAM ONE PATCH EVERY 7 DAYS
     Route: 065
  4. CLONIDINE [Suspect]
     Active Substance: CLONIDINE
     Dosage: 0.3 MILLIGRAM (GIVEN AGAIN AFTER WITHDRAWAL)
     Route: 048
  5. DIVALPROEX SODIUM [Suspect]
     Active Substance: DIVALPROEX SODIUM
     Indication: Bipolar I disorder
     Dosage: 1000 MILLIGRAM, QD-AT BEDTIME- EXTENDED RELEASE
     Route: 065
  6. METHADONE [Concomitant]
     Active Substance: METHADONE HYDROCHLORIDE
     Indication: Back pain
     Dosage: 170 MILLIGRAM, QD
     Route: 065
  7. SERTRALINE [Concomitant]
     Active Substance: SERTRALINE HYDROCHLORIDE
     Indication: Generalised anxiety disorder
     Dosage: 50 MILLIGRAM, QD
     Route: 065
  8. PROPRANOLOL [Concomitant]
     Active Substance: PROPRANOLOL HYDROCHLORIDE
     Indication: Hypertension
     Dosage: 40 MILLIGRAM, QD
     Route: 065
  9. FERROUS GLUCONATE [Concomitant]
     Active Substance: FERROUS GLUCONATE
     Indication: Product used for unknown indication
     Dosage: 324 MILLIGRAM, TID
     Route: 065
  10. SENNOSIDES [Concomitant]
     Active Substance: SENNOSIDES
     Indication: Product used for unknown indication
     Dosage: 8.6 MILLIGRAM, QD
     Route: 065
  11. FINASTERIDE [Concomitant]
     Active Substance: FINASTERIDE
     Indication: Benign prostatic hyperplasia
     Dosage: 10 MILLIGRAM, QD
     Route: 065
  12. ERGOCALCIFEROL [Concomitant]
     Active Substance: ERGOCALCIFEROL
     Indication: Product used for unknown indication
     Dosage: 50000 INTERNATIONAL UNIT WEEKLY
     Route: 065
  13. SODIUM BICARBONATE [Concomitant]
     Active Substance: SODIUM BICARBONATE
     Indication: Product used for unknown indication
     Dosage: 650 MILLIGRAM, BID
     Route: 065
  14. MORPHINE [Concomitant]
     Active Substance: MORPHINE
     Indication: Sciatica
     Dosage: 2 MILLIGRAM
     Route: 042
  15. HYDROMORPHONE [Concomitant]
     Active Substance: HYDROMORPHONE
     Indication: Sciatica
     Dosage: 2 MILLIGRAM, QD
     Route: 042
  16. DEXAMETHASONE [Concomitant]
     Active Substance: DEXAMETHASONE
     Indication: Sciatica
     Dosage: 4 MILLIGRAM, QD
     Route: 042

REACTIONS (7)
  - Hypotension [Unknown]
  - Hypokalaemia [Unknown]
  - Intentional product misuse [Unknown]
  - Withdrawal hypertension [Unknown]
  - Blood creatinine increased [Unknown]
  - Drug withdrawal syndrome [Unknown]
  - Treatment noncompliance [Unknown]
